FAERS Safety Report 14994856 (Version 1)
Quarter: 2018Q2

REPORT INFORMATION
  Report Type: Spontaneous
  Country: US (occurrence: US)
  Receive Date: 20180611
  Receipt Date: 20180611
  Transmission Date: 20180711
  Serious: Yes (Other)
  Sender: FDA-Public Use
  Company Number: PHEH2018US021921

PATIENT
  Sex: Female

DRUGS (7)
  1. PREDNISONE. [Concomitant]
     Active Substance: PREDNISONE
     Indication: LUNG INFECTION
     Dosage: UNK UNK, 3 DAYS A WEEK
     Route: 065
  2. POTASSIUM [Concomitant]
     Active Substance: POTASSIUM
     Indication: PRODUCT USED FOR UNKNOWN INDICATION
     Dosage: UNK
     Route: 065
  3. SUTENT [Suspect]
     Active Substance: SUNITINIB MALATE
     Indication: PANCREATIC CARCINOMA
     Dosage: 37.5 MG, QD
     Route: 065
     Dates: start: 201802
  4. SUTENT [Suspect]
     Active Substance: SUNITINIB MALATE
     Indication: SOLAR LENTIGO
  5. VITAMIN D [Concomitant]
     Active Substance: CHOLECALCIFEROL
     Indication: PRODUCT USED FOR UNKNOWN INDICATION
     Dosage: UNK
     Route: 065
  6. EVEROLIMUS. [Suspect]
     Active Substance: EVEROLIMUS
     Indication: PRODUCT USED FOR UNKNOWN INDICATION
     Dosage: UNK
     Route: 065
  7. OCTREOTIDE. [Concomitant]
     Active Substance: OCTREOTIDE
     Indication: NEOPLASM MALIGNANT
     Dosage: UNK UNK, QMO
     Route: 065

REACTIONS (8)
  - Skin fissures [Unknown]
  - Pulmonary congestion [Unknown]
  - Pulmonary fibrosis [Unknown]
  - Blister [Unknown]
  - Pain [Unknown]
  - Headache [Unknown]
  - Skin exfoliation [Unknown]
  - Clostridium difficile colitis [Unknown]
